FAERS Safety Report 11152319 (Version 2)
Quarter: 2015Q2

REPORT INFORMATION
  Report Type: Spontaneous
  Country: US (occurrence: US)
  Receive Date: 20150601
  Receipt Date: 20150608
  Transmission Date: 20150821
  Serious: Yes (Hospitalization)
  Sender: FDA-Public Use
  Company Number: US-HORIZON-RAV-0017-2015

PATIENT
  Age: 4 Year
  Sex: Female

DRUGS (1)
  1. RAVICTI [Suspect]
     Active Substance: GLYCEROL PHENYLBUTYRATE
     Indication: UREA CYCLE ENZYME DEFICIENCY
     Dates: start: 20131120

REACTIONS (3)
  - Hyperammonaemic crisis [Unknown]
  - Decreased appetite [Unknown]
  - Pneumonia [Unknown]

NARRATIVE: CASE EVENT DATE: 20150511
